FAERS Safety Report 6235474-7 (Version None)
Quarter: 2009Q2

REPORT INFORMATION
  Report Type: 
  Country: None (occurrence: None)
  Receive Date: 20090618
  Receipt Date: 20080416
  Transmission Date: 20091009
  Serious: No
  Sender: FDA-Public Use
  Company Number: US-ASTRAZENECA-2008UW07815

PATIENT
  Age: 43 Year
  Sex: Male

DRUGS (2)
  1. RHINOCORT [Suspect]
     Indication: SEASONAL ALLERGY
     Route: 045
     Dates: start: 20080411
  2. ZANTAC [Concomitant]

REACTIONS (2)
  - BLOOD PRESSURE DIASTOLIC DECREASED [None]
  - FATIGUE [None]
